FAERS Safety Report 24008720 (Version 1)
Quarter: 2024Q2

REPORT INFORMATION
  Report Type: Spontaneous
  Country: HU (occurrence: HU)
  Receive Date: 20240625
  Receipt Date: 20240625
  Transmission Date: 20240716
  Serious: Yes (Other)
  Sender: FDA-Public Use
  Company Number: HU-ROCHE-10000005484

PATIENT
  Age: 58 Year
  Sex: Female

DRUGS (6)
  1. RITUXIMAB [Suspect]
     Active Substance: RITUXIMAB
     Indication: B-cell small lymphocytic lymphoma
     Route: 065
  2. CYCLOPHOSPHAMIDE [Suspect]
     Active Substance: CYCLOPHOSPHAMIDE
     Indication: B-cell small lymphocytic lymphoma
     Route: 065
  3. DOXORUBICIN [Suspect]
     Active Substance: DOXORUBICIN
     Indication: B-cell small lymphocytic lymphoma
     Route: 065
  4. PREDNISONE [Suspect]
     Active Substance: PREDNISONE
     Indication: B-cell small lymphocytic lymphoma
     Route: 065
  5. VINCRISTINE [Suspect]
     Active Substance: VINCRISTINE
     Indication: B-cell small lymphocytic lymphoma
     Route: 065
  6. BENDAMUSTINE [Concomitant]
     Active Substance: BENDAMUSTINE

REACTIONS (2)
  - Febrile neutropenia [Unknown]
  - Disease progression [Unknown]

NARRATIVE: CASE EVENT DATE: 20210101
